FAERS Safety Report 7945237-X (Version None)
Quarter: 2011Q4

REPORT INFORMATION
  Report Type: 
  Country: None (occurrence: None)
  Receive Date: 20111129
  Receipt Date: 20110711
  Transmission Date: 20120403
  Serious: No
  Sender: FDA-Public Use
  Company Number: US-GLAXOSMITHKLINE-A0936304A

PATIENT
  Age: 47 Year
  Sex: Female

DRUGS (2)
  1. FLOVENT [Suspect]
     Indication: ASTHMA
     Dosage: 1BLS TWICE PER DAY
     Route: 055
     Dates: start: 20110510, end: 20110620
  2. SINGULAIR [Concomitant]
     Dates: end: 20110704

REACTIONS (2)
  - PARAESTHESIA [None]
  - HYPOAESTHESIA [None]
